FAERS Safety Report 8800767 (Version 3)
Quarter: 2014Q1

REPORT INFORMATION
  Report Type: Report from Study
  Country: US (occurrence: US)
  Receive Date: 20120920
  Receipt Date: 20140107
  Transmission Date: 20141002
  Serious: Yes (Other)
  Sender: FDA-Public Use
  Company Number: US-BRISTOL-MYERS SQUIBB COMPANY-16965600

PATIENT
  Age: 40 Year
  Sex: Male

DRUGS (4)
  1. IPILIMUMAB [Suspect]
     Indication: MALIGNANT MELANOMA
     Dosage: NO OF COURSE 12
     Route: 042
     Dates: start: 20100517, end: 20120910
  2. PREDNISONE [Concomitant]
     Dosage: TABS,20MG
     Route: 048
     Dates: start: 20120330
  3. HYDROCORTISONE [Concomitant]
     Dosage: TABS,FREQ:AS NECESSARY, 1 TAB EACH MORN,5-10 MG EVERY MORN.
     Route: 048
  4. MECLIZINE [Concomitant]
     Indication: DIZZINESS
     Dosage: AS NEEDED
     Route: 048

REACTIONS (1)
  - Hypoacusis [Recovered/Resolved]
